FAERS Safety Report 19453947 (Version 2)
Quarter: 2021Q2

REPORT INFORMATION
  Report Type: Spontaneous
  Country: CN (occurrence: CN)
  Receive Date: 20210623
  Receipt Date: 20210629
  Transmission Date: 20210717
  Serious: Yes (Hospitalization, Other)
  Sender: FDA-Public Use
  Company Number: CN-ASTRAZENECA-2021A539372

PATIENT
  Age: 59 Year
  Sex: Male
  Weight: 60 kg

DRUGS (1)
  1. IMFINZI [Suspect]
     Active Substance: DURVALUMAB
     Indication: NON-SMALL CELL LUNG CANCER STAGE III
     Dosage: 620 MG/CYCLE, ONCE EVERY HALF A MONTH
     Route: 042
     Dates: start: 20201018, end: 20201103

REACTIONS (2)
  - Immune-mediated lung disease [Recovering/Resolving]
  - Pneumonia bacterial [Unknown]
